FAERS Safety Report 12789508 (Version 1)
Quarter: 2016Q3

REPORT INFORMATION
  Report Type: Spontaneous
  Country: IT (occurrence: IT)
  Receive Date: 20160928
  Receipt Date: 20160928
  Transmission Date: 20161109
  Serious: Yes (Life-Threatening)
  Sender: FDA-Public Use
  Company Number: IT-B.I. PHARMACEUTICALS,INC./RIDGEFIELD-2016-BI-63270IT

PATIENT
  Age: 74 Year
  Sex: Female
  Weight: 75 kg

DRUGS (7)
  1. CATAPRESAN [Suspect]
     Active Substance: CLONIDINE
     Indication: HYPERTENSION
     Route: 065
     Dates: start: 20160912, end: 20160912
  2. ROCURONIO BROMURO [Suspect]
     Active Substance: ROCURONIUM BROMIDE
     Indication: ANAESTHESIA
     Route: 042
     Dates: start: 20160912, end: 20160912
  3. ULTRAVIST [Suspect]
     Active Substance: IOPROMIDE
     Indication: THROMBECTOMY
     Route: 065
     Dates: start: 20160912, end: 20160912
  4. FENTANYL HAMELN (FENTANYL) [Suspect]
     Active Substance: FENTANYL CITRATE
     Indication: ANAESTHESIA
     Route: 042
     Dates: start: 20160912, end: 20160912
  5. PROPOFOL. [Suspect]
     Active Substance: PROPOFOL
     Indication: ANAESTHESIA
     Route: 042
     Dates: start: 20160912, end: 20160912
  6. ACTILYSE [Suspect]
     Active Substance: ALTEPLASE
     Indication: THROMBECTOMY
     Route: 042
     Dates: start: 20160912, end: 20160912
  7. CATAPRESAN [Suspect]
     Active Substance: CLONIDINE
     Indication: ANAESTHESIA
     Route: 042
     Dates: start: 20160912, end: 20160912

REACTIONS (4)
  - Dyspnoea [Unknown]
  - Increased upper airway secretion [None]
  - Laryngeal oedema [Unknown]
  - Swollen tongue [Unknown]

NARRATIVE: CASE EVENT DATE: 20160912
